FAERS Safety Report 18103282 (Version 5)
Quarter: 2021Q1

REPORT INFORMATION
  Report Type: Spontaneous
  Country: US (occurrence: US)
  Receive Date: 20200803
  Receipt Date: 20210106
  Transmission Date: 20210419
  Serious: Yes (Other)
  Sender: FDA-Public Use
  Company Number: US-PFIZER INC-2020289686

PATIENT
  Age: 61 Year
  Sex: Male

DRUGS (1)
  1. XELJANZ [Suspect]
     Active Substance: TOFACITINIB CITRATE
     Indication: COLITIS ULCERATIVE
     Dosage: 10 MG, 2X/DAY
     Route: 048
     Dates: start: 20200616

REACTIONS (10)
  - Trismus [Unknown]
  - Wrong dose [Unknown]
  - Diarrhoea [Recovering/Resolving]
  - Headache [Unknown]
  - Fatigue [Recovering/Resolving]
  - Amnesia [Unknown]
  - Rhinorrhoea [Unknown]
  - Abscess oral [Unknown]
  - Sleep apnoea syndrome [Recovering/Resolving]
  - Poor quality sleep [Recovered/Resolved]

NARRATIVE: CASE EVENT DATE: 2020
